FAERS Safety Report 24938063 (Version 2)
Quarter: 2025Q3

REPORT INFORMATION
  Report Type: Spontaneous
  Country: US (occurrence: US)
  Receive Date: 20250206
  Receipt Date: 20250803
  Transmission Date: 20251021
  Serious: Yes (Hospitalization, Other)
  Sender: ALEXION PHARMACEUTICALS
  Company Number: US-AstraZeneca-CH-00798890A

PATIENT
  Sex: Female

DRUGS (1)
  1. BRILINTA [Suspect]
     Active Substance: TICAGRELOR
     Dosage: 90 MILLIGRAM, BID
     Dates: start: 20200901, end: 20201028

REACTIONS (11)
  - Dyspnoea [Recovered/Resolved]
  - Fall [Unknown]
  - Cerebral haemorrhage [Unknown]
  - Cervical vertebral fracture [Unknown]
  - Pelvic fracture [Unknown]
  - Abdominal wall disorder [Unknown]
  - Rotator cuff syndrome [Unknown]
  - Nasal septum deviation [Unknown]
  - Tooth fracture [Unknown]
  - Craniofacial fracture [Unknown]
  - Loss of consciousness [Unknown]
